FAERS Safety Report 8474559-1 (Version None)
Quarter: 2012Q2

REPORT INFORMATION
  Report Type: 
  Country: None (occurrence: None)
  Receive Date: 20120628
  Receipt Date: 20120619
  Transmission Date: 20120825
  Serious: Yes (Hospitalization)
  Sender: FDA-Public Use
  Company Number: US-BAYER-2012-062396

PATIENT
  Age: 39 Year
  Sex: Female

DRUGS (9)
  1. NEURONTIN [Concomitant]
     Dosage: 300 MG, 1 DAILY
     Route: 048
  2. DROSPIRENONE AND ETHINYL ESTRADIOL [Suspect]
  3. INDOMETHACIN [Concomitant]
     Dosage: 25 MG, UNK
     Dates: start: 20100910
  4. ZOLOFT [Concomitant]
     Dosage: 50 MG, 1 DAILY
     Route: 048
  5. YAZ [Suspect]
  6. PREVACID [Concomitant]
     Dosage: 30 MG, UNK
  7. TOPIRAMATE [Concomitant]
     Dosage: 50 MG, UNK
     Dates: start: 20100707
  8. AMOXICILLIN [Concomitant]
     Dosage: 875 MG, UNK
     Dates: start: 20100616
  9. CARISOPRODOL [Concomitant]
     Dosage: 350 MG, UNK
     Dates: start: 20100602, end: 20101031

REACTIONS (1)
  - PULMONARY EMBOLISM [None]
